FAERS Safety Report 19106507 (Version 2)
Quarter: 2021Q2

REPORT INFORMATION
  Report Type: Other
  Country: FR (occurrence: FR)
  Receive Date: 20210407
  Receipt Date: 20210416
  Transmission Date: 20210717
  Serious: Yes (Hospitalization)
  Sender: FDA-Public Use
  Company Number: FR-CELLTRION INC.-2021FR004446

PATIENT

DRUGS (6)
  1. POLATUZUMAB VEDOTIN. [Suspect]
     Active Substance: POLATUZUMAB VEDOTIN
     Indication: DIFFUSE LARGE B-CELL LYMPHOMA
     Dosage: 1.8 MG/KG, CYCLE 2 RECEIVED ON 30/JUL/2020, CYCLE 3 RECEIVED ON 27/AUG/2020, CYCLE 4 RECEIVED ON 24/
     Route: 042
     Dates: start: 20200702
  2. RITUXIMAB (UNKNOWN) [Suspect]
     Active Substance: RITUXIMAB
     Dosage: 375 MG/M2, CYCLE 2 RECEIVED ON 30/JUL/2020, CYCLE 3 RECEIVED ON 27/AUG/2020, CYCLE 4 RECEIVED ON 24/
     Route: 042
     Dates: start: 20200702
  3. BENDAMUSTINE [Suspect]
     Active Substance: BENDAMUSTINE
     Indication: DIFFUSE LARGE B-CELL LYMPHOMA
     Dosage: 90 MG/M2
     Route: 042
     Dates: start: 20200604
  4. RITUXIMAB (UNKNOWN) [Suspect]
     Active Substance: RITUXIMAB
     Indication: DIFFUSE LARGE B-CELL LYMPHOMA
     Dosage: 375 MG/M2
     Route: 042
     Dates: start: 20200604
  5. CHOP [Concomitant]
     Active Substance: CYCLOPHOSPHAMIDE\DOXORUBICIN\PREDNISONE\VINCRISTINE
     Dosage: UNK
     Dates: start: 20170801
  6. BENDAMUSTINE [Suspect]
     Active Substance: BENDAMUSTINE
     Dosage: 90 MG/M2, CYCLE 2 RECEIVED ON 30/JUL/2020, CYCLE 3 RECEIVED ON 27/AUG/2020, CYCLE 4 RECEIVED ON 24/S
     Route: 042
     Dates: start: 20200702

REACTIONS (3)
  - Neuropathy peripheral [Unknown]
  - Off label use [Unknown]
  - Intentional product use issue [Unknown]

NARRATIVE: CASE EVENT DATE: 20200827
